FAERS Safety Report 14123017 (Version 4)
Quarter: 2018Q1

REPORT INFORMATION
  Report Type: Spontaneous
  Country: FR (occurrence: FR)
  Receive Date: 20171025
  Receipt Date: 20180125
  Transmission Date: 20180508
  Serious: Yes (Other)
  Sender: FDA-Public Use
  Company Number: FR-ROCHE-2012761

PATIENT
  Age: 78 Year
  Sex: Female

DRUGS (3)
  1. VENTOLINE [Concomitant]
     Active Substance: ALBUTEROL
     Indication: ASTHMA
     Dosage: , PRN
     Route: 065
  2. LUCENTIS [Suspect]
     Active Substance: RANIBIZUMAB
     Indication: NEOVASCULAR AGE-RELATED MACULAR DEGENERATION
     Route: 031
     Dates: start: 2014, end: 201710
  3. FLUTIFORM [Concomitant]
     Active Substance: FLUTICASONE PROPIONATE\FORMOTEROL FUMARATE
     Indication: ASTHMA
     Dosage: , PRN
     Route: 065

REACTIONS (20)
  - Respiratory disorder [Recovering/Resolving]
  - Oropharyngeal discomfort [Unknown]
  - Urticaria [Recovering/Resolving]
  - Erythema [Recovered/Resolved]
  - Eye pain [Unknown]
  - Thinking abnormal [Unknown]
  - Pruritus [Not Recovered/Not Resolved]
  - Pulmonary congestion [Recovering/Resolving]
  - Productive cough [Unknown]
  - Angioedema [Recovering/Resolving]
  - Fatigue [Unknown]
  - Drug intolerance [Unknown]
  - Respiratory symptom [Recovering/Resolving]
  - Cough [Not Recovered/Not Resolved]
  - Speech disorder [Unknown]
  - Laryngeal discomfort [Unknown]
  - Asthma [Not Recovered/Not Resolved]
  - Dyspnoea [Unknown]
  - Ocular discomfort [Unknown]
  - Headache [Unknown]

NARRATIVE: CASE EVENT DATE: 2015
